FAERS Safety Report 7323972-4 (Version None)
Quarter: 2011Q1

REPORT INFORMATION
  Report Type: 
  Country: None (occurrence: None)
  Receive Date: 20110301
  Receipt Date: 20110224
  Transmission Date: 20110831
  Serious: Yes (Other)
  Sender: FDA-Public Use
  Company Number: B0702804A

PATIENT
  Sex: Female
  Weight: 75 kg

DRUGS (9)
  1. BISACODYL [Suspect]
     Dosage: 5MG PER DAY
     Route: 048
     Dates: end: 20100715
  2. RIMACTANE [Suspect]
     Dosage: 300MG THREE TIMES PER DAY
     Route: 048
     Dates: end: 20100715
  3. OXYNORM [Concomitant]
  4. DICLOXACILLIN [Concomitant]
     Dosage: 1G THREE TIMES PER DAY
     Dates: end: 20100425
  5. ZINACEF [Suspect]
     Dosage: 1.5MG THREE TIMES PER DAY
     Route: 030
     Dates: end: 20100425
  6. LAMICTAL [Suspect]
     Indication: EPILEPSY
     Route: 048
     Dates: start: 19800101
  7. FUCIDINE CAP [Suspect]
     Dosage: 500MG THREE TIMES PER DAY
     Route: 048
     Dates: end: 20100715
  8. CORODIL [Concomitant]
     Indication: HYPERTENSION
     Dosage: 10MG PER DAY
     Route: 048
  9. AMLODIPINE [Concomitant]
     Indication: HYPERTENSION
     Dosage: 10MG PER DAY

REACTIONS (2)
  - GRAND MAL CONVULSION [None]
  - DRUG INTERACTION [None]
